FAERS Safety Report 18670332 (Version 1)
Quarter: 2020Q4

REPORT INFORMATION
  Report Type: Spontaneous
  Country: US (occurrence: US)
  Receive Date: 20201228
  Receipt Date: 20201228
  Transmission Date: 20210114
  Serious: No
  Sender: FDA-Public Use
  Company Number: US-TAKEDA-2020TUS058680

PATIENT
  Sex: Female

DRUGS (7)
  1. TIGER BALM PAIN RELIEVING PATCH [Concomitant]
     Indication: BACK PAIN
  2. ALTIIMMUNE [Concomitant]
     Indication: MEDICAL DIET
  3. TYLENOL A [Concomitant]
     Active Substance: ACETAMINOPHEN
     Indication: BACK PAIN
  4. CATALYST U [Concomitant]
     Indication: MEDICAL DIET
  5. ALAVERT ALLERGY [Concomitant]
     Active Substance: LORATADINE
     Indication: DRY EYE
  6. SAMBUCUS IMMUNE [Concomitant]
     Indication: PRODUCT USED FOR UNKNOWN INDICATION
  7. PENTASA [Suspect]
     Active Substance: MESALAMINE
     Indication: COLITIS ULCERATIVE
     Dosage: 500 MILLIGRAM, BID, 2 CAPSULES TWICE DAILY
     Dates: start: 20201211

REACTIONS (6)
  - Inappropriate schedule of product administration [Unknown]
  - Product colour issue [Unknown]
  - Pain [Unknown]
  - Arthralgia [Unknown]
  - Chest pain [Unknown]
  - Breast pain [Unknown]
